FAERS Safety Report 5386923-8 (Version None)
Quarter: 2007Q3

REPORT INFORMATION
  Report Type: 
  Country: None (occurrence: None)
  Receive Date: 20070713
  Receipt Date: 20070703
  Transmission Date: 20080115
  Serious: Yes (Life-Threatening, Hospitalization, Other)
  Sender: FDA-Public Use
  Company Number: JP-PFIZER INC-2007051570

PATIENT
  Sex: Female

DRUGS (6)
  1. LIPITOR [Suspect]
     Indication: HYPERLIPIDAEMIA
     Dosage: DAILY DOSE:10MG
     Route: 048
  2. ASPIRIN [Suspect]
     Indication: ANGINA PECTORIS
     Dosage: DAILY DOSE:100MG
     Route: 048
  3. DILTIAZEM HCL [Concomitant]
     Indication: ANGINA PECTORIS
     Dosage: DAILY DOSE:200MG
     Route: 048
  4. NITOROL R [Concomitant]
     Indication: ANGINA PECTORIS
     Dosage: DAILY DOSE:40MG
     Route: 048
  5. EPADEL [Concomitant]
     Indication: HYPERLIPIDAEMIA
     Dosage: DAILY DOSE:1800MG
     Route: 048
  6. BLOPRESS [Concomitant]
     Indication: HYPERTENSION
     Dosage: DAILY DOSE:12MG
     Route: 048

REACTIONS (1)
  - INTERSTITIAL LUNG DISEASE [None]
